FAERS Safety Report 13181416 (Version 1)
Quarter: 2017Q1

REPORT INFORMATION
  Report Type: Spontaneous
  Country: US (occurrence: US)
  Receive Date: 20170202
  Receipt Date: 20170202
  Transmission Date: 20170428
  Serious: Yes (Other)
  Sender: FDA-Public Use
  Company Number: US-TEVA-735259USA

PATIENT
  Sex: Female

DRUGS (1)
  1. COPAXONE [Suspect]
     Active Substance: GLATIRAMER ACETATE
     Dosage: UNKNOWN FORM STRENGTH
     Route: 065

REACTIONS (9)
  - Arthralgia [Unknown]
  - Muscle disorder [Recovering/Resolving]
  - Vomiting [Unknown]
  - Spinal operation [Unknown]
  - Radiotherapy [Unknown]
  - Pain [Not Recovered/Not Resolved]
  - Cardiac disorder [Recovered/Resolved]
  - Mood altered [Unknown]
  - Adverse event [Unknown]
